FAERS Safety Report 16819167 (Version 1)
Quarter: 2019Q3

REPORT INFORMATION
  Report Type: Spontaneous
  Country: JP (occurrence: JP)
  Receive Date: 20190917
  Receipt Date: 20190917
  Transmission Date: 20191005
  Serious: Yes (Hospitalization)
  Sender: FDA-Public Use
  Company Number: JP-PFIZER INC-2019391826

PATIENT
  Sex: Male

DRUGS (16)
  1. RISPERDAL [Suspect]
     Active Substance: RISPERIDONE
     Indication: AFFECTIVE DISORDER
     Dosage: UNK (HALF A TABLET)
     Route: 048
     Dates: start: 20190810
  2. AMLODIN [Suspect]
     Active Substance: AMLODIPINE BESYLATE
     Indication: SCHIZOPHRENIA
     Dosage: 10 MG, DAILY
     Route: 048
     Dates: start: 20190810
  3. BETANIS [Concomitant]
     Active Substance: MIRABEGRON
     Dosage: UNK
  4. LANDSEN [Suspect]
     Active Substance: CLONAZEPAM
     Dosage: 1.5 MG, QD
     Route: 048
  5. LANDSEN [Suspect]
     Active Substance: CLONAZEPAM
     Dosage: 1.5 MG, QD
     Route: 048
  6. LITHIUM CARBONATE. [Concomitant]
     Active Substance: LITHIUM CARBONATE
     Dosage: UNK
  7. LANDSEN [Suspect]
     Active Substance: CLONAZEPAM
     Indication: AFFECTIVE DISORDER
     Dosage: 0.5 MG, QD
     Route: 048
  8. AKINETON [Suspect]
     Active Substance: BIPERIDEN HYDROCHLORIDE
     Indication: SCHIZOPHRENIA
     Dosage: UNK, AS NEEDED 4 TIMES/DAY
     Route: 048
     Dates: start: 20190810
  9. LANDSEN [Suspect]
     Active Substance: CLONAZEPAM
     Dosage: 4 MG, QD
     Route: 048
  10. METGLUCO [Concomitant]
     Active Substance: METFORMIN HYDROCHLORIDE
     Dosage: 2 DF, DAILY (2 TABLETS OF METGLUCO 500 MG (A TABLET EACH IN THE MORNING AND EVENING)
     Route: 048
     Dates: start: 20190810
  11. AMLODIN [Suspect]
     Active Substance: AMLODIPINE BESYLATE
     Indication: HYPERTENSION
     Dosage: 20 MG, QD
     Route: 048
     Dates: start: 20190904, end: 20190904
  12. AMLODIN [Suspect]
     Active Substance: AMLODIPINE BESYLATE
     Dosage: 20 MG, QD
     Route: 048
     Dates: start: 20190910, end: 20190910
  13. LORAZEPAM. [Suspect]
     Active Substance: LORAZEPAM
     Indication: AFFECTIVE DISORDER
     Dosage: UNK
     Route: 048
  14. AKINETON [Suspect]
     Active Substance: BIPERIDEN HYDROCHLORIDE
     Dosage: 4 MG, SINGLE
     Route: 048
  15. DIOVAN [Concomitant]
     Active Substance: VALSARTAN
     Dosage: 2 DF, DAILY (2 TABLETS OF DIOVAN 80 MG ON A DAILY BASIS)
     Route: 048
     Dates: start: 20190810
  16. WYPAX [Concomitant]
     Active Substance: LORAZEPAM
     Dosage: UNK

REACTIONS (6)
  - Overdose [Unknown]
  - Inappropriate schedule of product administration [Unknown]
  - Akathisia [Unknown]
  - Dizziness postural [Unknown]
  - Product administration error [Unknown]
  - Parkinsonian gait [Unknown]

NARRATIVE: CASE EVENT DATE: 2019
